FAERS Safety Report 16809355 (Version 1)
Quarter: 2019Q3

REPORT INFORMATION
  Report Type: Spontaneous
  Country: US (occurrence: US)
  Receive Date: 20190916
  Receipt Date: 20190916
  Transmission Date: 20191005
  Serious: No
  Sender: FDA-Public Use
  Company Number: US-HIKMA PHARMACEUTICALS USA INC.-US-H14001-19-04667

PATIENT
  Age: 20 Year
  Sex: Female

DRUGS (6)
  1. DEXAMETHASONE. [Suspect]
     Active Substance: DEXAMETHASONE
     Route: 048
     Dates: start: 20190802, end: 20190804
  2. NORCO [Concomitant]
     Active Substance: ACETAMINOPHEN\HYDROCODONE BITARTRATE
     Indication: PAIN
     Route: 065
  3. DEXAMETHASONE. [Suspect]
     Active Substance: DEXAMETHASONE
     Route: 048
     Dates: start: 20190805, end: 20190805
  4. AMOXICILLIN/CLAVULANIC ACID [Concomitant]
     Active Substance: AMOXICILLIN\CLAVULANIC ACID
     Indication: SINUSITIS
     Route: 065
     Dates: start: 20190801, end: 20190815
  5. DEXAMETHASONE. [Suspect]
     Active Substance: DEXAMETHASONE
     Indication: POST PROCEDURAL SWELLING
     Route: 048
     Dates: start: 20190724, end: 20190727
  6. DEXAMETHASONE. [Suspect]
     Active Substance: DEXAMETHASONE
     Route: 048
     Dates: start: 20190728, end: 20190730

REACTIONS (12)
  - Head discomfort [Unknown]
  - Depression [Not Recovered/Not Resolved]
  - Disturbance in attention [Unknown]
  - Tremor [Unknown]
  - Insomnia [Unknown]
  - Emotional poverty [Unknown]
  - Weight decreased [Unknown]
  - Heart rate increased [Unknown]
  - Confusional state [Unknown]
  - Anxiety [Unknown]
  - Hypertension [Unknown]
  - Decreased appetite [Unknown]

NARRATIVE: CASE EVENT DATE: 201907
